FAERS Safety Report 10084751 (Version 2)
Quarter: 2014Q2

REPORT INFORMATION
  Report Type: Spontaneous
  Country: SE (occurrence: SE)
  Receive Date: 20140417
  Receipt Date: 20140430
  Transmission Date: 20141212
  Serious: Yes (Hospitalization)
  Sender: FDA-Public Use
  Company Number: SE-PFIZER INC-2014101735

PATIENT
  Age: 67 Year
  Sex: Female

DRUGS (7)
  1. CHAMPIX [Suspect]
     Indication: SMOKING CESSATION THERAPY
     Dosage: 0.5 MG ^ACCORDING TO SCHEDULE^, UNK
     Dates: start: 20140223, end: 20140225
  2. SALURES [Suspect]
     Indication: HYPERTENSION
     Dosage: 2.5 MG, 1X/DAY
     Dates: start: 20131023, end: 20140225
  3. LOSARTAN [Concomitant]
     Indication: HYPERTENSION
     Dosage: 50 MG, 1X/DAY
  4. ATARAX [Concomitant]
     Dosage: UNK
  5. DERMOVAT [Concomitant]
     Dosage: UNK
  6. ELOCON [Concomitant]
     Dosage: UNK
  7. SALICYLSYREVASELIN APL [Concomitant]
     Dosage: UNK

REACTIONS (1)
  - Hyponatraemia [Recovered/Resolved]
